FAERS Safety Report 7119257-1 (Version None)
Quarter: 2010Q4

REPORT INFORMATION
  Report Type: 
  Country: None (occurrence: None)
  Receive Date: 20101123
  Receipt Date: 20101111
  Transmission Date: 20110411
  Serious: Yes (Other)
  Sender: FDA-Public Use
  Company Number: US-CELGENEUS-163-21880-10111745

PATIENT
  Sex: Female

DRUGS (3)
  1. REVLIMID [Suspect]
     Indication: MULTIPLE MYELOMA
     Route: 048
     Dates: start: 20100915, end: 20101102
  2. ALKERAN [Concomitant]
     Route: 065
  3. PREDNISONE [Concomitant]
     Route: 065

REACTIONS (2)
  - ANAPHYLACTIC REACTION [None]
  - RASH GENERALISED [None]
